FAERS Safety Report 18132238 (Version 3)
Quarter: 2020Q3

REPORT INFORMATION
  Report Type: Spontaneous
  Country: FR (occurrence: FR)
  Receive Date: 20200811
  Receipt Date: 20200827
  Transmission Date: 20201103
  Serious: Yes (Life-Threatening, Hospitalization, Other)
  Sender: FDA-Public Use
  Company Number: FR-AUROBINDO-AUR-APL-2020-038210

PATIENT
  Age: 73 Year
  Sex: Female

DRUGS (12)
  1. METFORMIN [Suspect]
     Active Substance: METFORMIN HYDROCHLORIDE
     Indication: DIABETES MELLITUS
     Dosage: 1000 MILLIGRAM, 3 TIMES A DAY
     Route: 048
     Dates: end: 2020
  2. LETROZOLE. [Concomitant]
     Active Substance: LETROZOLE
     Indication: BREAST CANCER METASTATIC
     Dosage: UNK
     Route: 065
     Dates: start: 202002
  3. LETROZOLE. [Concomitant]
     Active Substance: LETROZOLE
     Indication: HORMONE RECEPTOR POSITIVE BREAST CANCER
  4. SAXAGLIPTIN [Concomitant]
     Active Substance: SAXAGLIPTIN
     Indication: DIABETES MELLITUS
     Dosage: UNK
     Route: 065
  5. LETROZOLE. [Concomitant]
     Active Substance: LETROZOLE
     Indication: METASTASES TO BONE
  6. LOPERAMIDE [Concomitant]
     Active Substance: LOPERAMIDE
     Indication: PRODUCT USED FOR UNKNOWN INDICATION
     Dosage: UNK
     Route: 065
  7. METOCLOPRAMIDE. [Concomitant]
     Active Substance: METOCLOPRAMIDE
     Indication: PRODUCT USED FOR UNKNOWN INDICATION
     Dosage: UNK
     Route: 065
  8. INSULIN [Concomitant]
     Active Substance: INSULIN NOS
     Indication: DIABETES MELLITUS
     Dosage: UNK
     Route: 065
  9. ABEMACICLIB [Interacting]
     Active Substance: ABEMACICLIB
     Indication: METASTASES TO BONE
     Dosage: 150 MILLIGRAM, TWO TIMES A DAY
     Route: 065
     Dates: start: 202002, end: 2020
  10. ABEMACICLIB [Interacting]
     Active Substance: ABEMACICLIB
     Indication: HORMONE RECEPTOR POSITIVE BREAST CANCER
  11. GLICLAZIDE [Concomitant]
     Active Substance: GLICLAZIDE
     Indication: DIABETES MELLITUS
     Dosage: UNK
     Route: 065
  12. ABEMACICLIB [Interacting]
     Active Substance: ABEMACICLIB
     Indication: BREAST CANCER METASTATIC

REACTIONS (9)
  - Anuria [Recovered/Resolved]
  - Renal tubular necrosis [Recovered/Resolved]
  - Acute kidney injury [Recovered/Resolved]
  - Drug interaction [Recovered/Resolved]
  - Nausea [Unknown]
  - Nephropathy toxic [Recovered/Resolved]
  - Drug level increased [Recovered/Resolved]
  - Diarrhoea [Unknown]
  - Vomiting [Unknown]

NARRATIVE: CASE EVENT DATE: 2020
